FAERS Safety Report 13695172 (Version 3)
Quarter: 2017Q3

REPORT INFORMATION
  Report Type: Report from Study
  Country: US (occurrence: US)
  Receive Date: 20170627
  Receipt Date: 20170825
  Transmission Date: 20171127
  Serious: Yes (Life-Threatening, Hospitalization)
  Sender: FDA-Public Use
  Company Number: US-OTSUKA-2017_013930

PATIENT
  Sex: Male

DRUGS (1)
  1. ARIPIPRAZOLE. [Suspect]
     Active Substance: ARIPIPRAZOLE
     Indication: SCHIZOPHRENIA
     Dosage: 400 MG, QD
     Route: 030
     Dates: start: 2017

REACTIONS (14)
  - Pain [Unknown]
  - Diabetes mellitus [Unknown]
  - Cardiac disorder [Unknown]
  - Infection [Unknown]
  - Feeling abnormal [Not Recovered/Not Resolved]
  - Renal failure [Unknown]
  - Intestinal obstruction [Unknown]
  - Vomiting [Unknown]
  - Confusional state [Unknown]
  - Diarrhoea [Unknown]
  - Hypotension [Not Recovered/Not Resolved]
  - Restlessness [Unknown]
  - Blood glucose increased [Recovering/Resolving]
  - Tooth extraction [Unknown]
